FAERS Safety Report 7421904-1 (Version None)
Quarter: 2011Q2

REPORT INFORMATION
  Report Type: 
  Country: None (occurrence: None)
  Receive Date: 20110418
  Receipt Date: 20110406
  Transmission Date: 20111010
  Serious: No
  Sender: FDA-Public Use
  Company Number: US-ELI_LILLY_AND_COMPANY-US201104002053

PATIENT
  Sex: Female

DRUGS (8)
  1. HYDROCODONE [Concomitant]
     Indication: PAIN
     Dosage: UNK, PRN
  2. LYRICA [Concomitant]
     Dosage: 75 MG, EACH MORNING
  3. DIOVAN [Concomitant]
     Indication: BLOOD PRESSURE MANAGEMENT
  4. CYMBALTA [Suspect]
     Indication: DEPRESSION
     Dosage: 60 MG, QD
     Dates: start: 20101201
  5. LYRICA [Concomitant]
     Dosage: 100 MG, EACH EVENING
  6. NEXIUM [Concomitant]
     Dosage: UNK, QD
  7. MORPHINE [Concomitant]
  8. SINGULAIR [Concomitant]
     Dosage: UNK, QD

REACTIONS (1)
  - HEPATIC ENZYME INCREASED [None]
